FAERS Safety Report 9169886 (Version 2)
Quarter: 2013Q3

REPORT INFORMATION
  Report Type: Spontaneous
  Country: US (occurrence: None)
  Receive Date: 20130307
  Receipt Date: 20130822
  Transmission Date: 20140515
  Serious: Yes (Congenital Anomaly)
  Sender: FDA-Public Use
  Company Number: ADR-2013UNK023

PATIENT
  Age: 273 Day
  Sex: Male
  Weight: 3.07 kg

DRUGS (2)
  1. LAMIVUDINE AND ZIDOVUDINE [Suspect]
     Indication: ACQUIRED IMMUNODEFICIENCY SYNDROME
     Dosage: 2 TABS
     Route: 048
     Dates: start: 20100715, end: 20100722
  2. LOPINAVIR/RITONAVIR [Concomitant]

REACTIONS (2)
  - Ventricular septal defect [None]
  - Maternal drugs affecting foetus [None]
